FAERS Safety Report 10188843 (Version 1)
Quarter: 2014Q2

REPORT INFORMATION
  Report Type: Spontaneous
  Country: US (occurrence: US)
  Receive Date: 20140522
  Receipt Date: 20140522
  Transmission Date: 20141212
  Serious: No
  Sender: FDA-Public Use
  Company Number: US-SA-2014SA025281

PATIENT
  Age: 58 Year
  Sex: Male

DRUGS (5)
  1. LANTUS SOLOSTAR [Suspect]
     Indication: TYPE 2 DIABETES MELLITUS
     Dosage: STARTED SINCE 8 MONTHS.?BROKE DOSE IN TO 25 UNITS AND 30 UNITS DOSE:55 UNIT(S)
     Route: 051
     Dates: start: 2013
  2. LANTUS SOLOSTAR [Suspect]
     Indication: TYPE 2 DIABETES MELLITUS
     Dosage: DOSE:65 UNIT(S)
     Route: 051
  3. SOLOSTAR [Concomitant]
     Indication: TYPE 2 DIABETES MELLITUS
     Dosage: STARTED SINCE 8 MONTHS
     Dates: start: 2013
  4. NOVOLOG [Concomitant]
  5. VICTOZA [Concomitant]

REACTIONS (1)
  - Muscular weakness [Unknown]
